FAERS Safety Report 7085698-4 (Version None)
Quarter: 2010Q4

REPORT INFORMATION
  Report Type: 
  Country: None (occurrence: None)
  Receive Date: 20101027
  Receipt Date: 20101013
  Transmission Date: 20110411
  Serious: Yes (Disabling, Other)
  Sender: FDA-Public Use
  Company Number: ACO_02735_2010

PATIENT
  Sex: Female

DRUGS (2)
  1. AMPYRA [Suspect]
     Indication: PRODUCT USED FOR UNKNOWN INDICATION
     Dosage: (10 MG BID), (10 MG QD)
     Dates: start: 20100902, end: 20101001
  2. AMPYRA [Suspect]
     Indication: PRODUCT USED FOR UNKNOWN INDICATION
     Dosage: (10 MG BID), (10 MG QD)
     Dates: start: 20101001, end: 20101011

REACTIONS (5)
  - ABASIA [None]
  - ASTHENIA [None]
  - FACIAL PAIN [None]
  - MUSCULAR WEAKNESS [None]
  - PRURITUS [None]
